FAERS Safety Report 5413325-8 (Version None)
Quarter: 2007Q3

REPORT INFORMATION
  Report Type: 
  Country: None (occurrence: None)
  Receive Date: 20070810
  Receipt Date: 20070730
  Transmission Date: 20080115
  Serious: Yes (Life-Threatening, Hospitalization, Other)
  Sender: FDA-Public Use
  Company Number: 2007SP013062

PATIENT
  Age: 91 Year
  Sex: Female
  Weight: 44.1 kg

DRUGS (5)
  1. CLARITIN [Suspect]
     Indication: IMPETIGO
     Dosage: 10 MG; ; PO
     Route: 048
     Dates: start: 20070430, end: 20070518
  2. CLARITIN [Suspect]
     Indication: PRURITUS
     Dosage: 10 MG; ; PO
     Route: 048
     Dates: start: 20070430, end: 20070518
  3. MINOCYCLINE HCL [Suspect]
     Indication: IMPETIGO
     Dosage: 100 MG; QD; PO
     Route: 048
     Dates: start: 20070502, end: 20070516
  4. GENTACIN [Concomitant]
  5. RINDERON-VG [Concomitant]

REACTIONS (4)
  - ANOREXIA [None]
  - CARDIAC FAILURE CONGESTIVE [None]
  - DEMENTIA [None]
  - VENTRICULAR TACHYCARDIA [None]
